FAERS Safety Report 6286742-4 (Version None)
Quarter: 2009Q3

REPORT INFORMATION
  Report Type: 
  Country: None (occurrence: None)
  Receive Date: 20090724
  Receipt Date: 20090710
  Transmission Date: 20100115
  Serious: Yes (Life-Threatening)
  Sender: FDA-Public Use
  Company Number: 001277

PATIENT
  Sex: Female
  Weight: 63 kg

DRUGS (8)
  1. VIMPAT [Suspect]
     Dosage: (100 MG QD ORAL), (200 MG QD ORAL), (300 MG QD ORAL), (350 MG QD ORAL), (200 MG BID ORAL)
     Route: 048
     Dates: start: 20090415, end: 20090421
  2. VIMPAT [Suspect]
     Dosage: (100 MG QD ORAL), (200 MG QD ORAL), (300 MG QD ORAL), (350 MG QD ORAL), (200 MG BID ORAL)
     Route: 048
     Dates: start: 20090422, end: 20090428
  3. VIMPAT [Suspect]
     Dosage: (100 MG QD ORAL), (200 MG QD ORAL), (300 MG QD ORAL), (350 MG QD ORAL), (200 MG BID ORAL)
     Route: 048
     Dates: start: 20090429, end: 20090527
  4. VIMPAT [Suspect]
     Dosage: (100 MG QD ORAL), (200 MG QD ORAL), (300 MG QD ORAL), (350 MG QD ORAL), (200 MG BID ORAL)
     Route: 048
     Dates: start: 20090528, end: 20090531
  5. VIMPAT [Suspect]
     Dosage: (100 MG QD ORAL), (200 MG QD ORAL), (300 MG QD ORAL), (350 MG QD ORAL), (200 MG BID ORAL)
     Route: 048
     Dates: start: 20090601
  6. PHENHYDAN /00017401/ [Concomitant]
  7. MIRTAZAPINE [Concomitant]
  8. DIAZEPAM [Concomitant]

REACTIONS (2)
  - DEPRESSION [None]
  - SUICIDE ATTEMPT [None]
